FAERS Safety Report 20540292 (Version 4)
Quarter: 2022Q4

REPORT INFORMATION
  Report Type: Spontaneous
  Country: US (occurrence: US)
  Receive Date: 20220302
  Receipt Date: 20221025
  Transmission Date: 20230113
  Serious: Yes (Other)
  Sender: FDA-Public Use
  Company Number: US-BRISTOL-MYERS SQUIBB COMPANY-BMS-2022-025987

PATIENT
  Age: 79 Year
  Sex: Female

DRUGS (2)
  1. SPRYCEL [Suspect]
     Active Substance: DASATINIB
     Indication: Product used for unknown indication
     Dosage: TAKE 1 TABLET BY MOUTH ONCE DAILY
     Route: 048
  2. SPRYCEL [Suspect]
     Active Substance: DASATINIB
     Route: 048

REACTIONS (16)
  - Full blood count decreased [Unknown]
  - Drug ineffective [Unknown]
  - Bone marrow disorder [Unknown]
  - Cardiac valve disease [Unknown]
  - Urinary tract infection [Not Recovered/Not Resolved]
  - Hiatus hernia [Unknown]
  - Dyspnoea [Unknown]
  - Pain [Unknown]
  - Insomnia [Unknown]
  - Pyrexia [Unknown]
  - Bladder disorder [Unknown]
  - Nausea [Unknown]
  - Taste disorder [Unknown]
  - Anxiety [Unknown]
  - Cough [Unknown]
  - Cardiac disorder [Unknown]

NARRATIVE: CASE EVENT DATE: 20220216
